FAERS Safety Report 24931923 (Version 2)
Quarter: 2025Q1

REPORT INFORMATION
  Report Type: Report from Study
  Country: US (occurrence: US)
  Receive Date: 20250205
  Receipt Date: 20250318
  Transmission Date: 20250408
  Serious: No
  Sender: SUNOVION
  Company Number: US-SUMITOMO PHARMA SWITZERLAND GMBH-2025SPA001081

PATIENT

DRUGS (14)
  1. ORGOVYX [Suspect]
     Active Substance: RELUGOLIX
     Indication: Prostate cancer
     Dosage: 360 MG, SINGLE
     Route: 048
     Dates: start: 20250110, end: 20250110
  2. ORGOVYX [Suspect]
     Active Substance: RELUGOLIX
     Dosage: 120 MG, QD
     Route: 048
     Dates: start: 20250111
  3. RYTARY [Concomitant]
     Active Substance: CARBIDOPA\LEVODOPA
     Route: 048
  4. CITALOPRAM [Concomitant]
     Active Substance: CITALOPRAM
     Route: 065
  5. DOXEPIN [Concomitant]
     Active Substance: DOXEPIN
     Route: 065
  6. Cvs melatonin [Concomitant]
     Route: 065
  7. MIDODRINE HYDROCHLORIDE [Concomitant]
     Active Substance: MIDODRINE HYDROCHLORIDE
     Route: 065
  8. B12 [Concomitant]
     Route: 060
  9. Cal Mag [Concomitant]
     Route: 048
  10. VITAMIN D3 [Concomitant]
     Active Substance: CHOLECALCIFEROL
     Route: 065
  11. FOLIC ACID [Concomitant]
     Active Substance: FOLIC ACID
     Route: 065
  12. CALCIUM [Concomitant]
     Active Substance: CALCIUM
     Route: 065
  13. ABIRATERONE [Concomitant]
     Active Substance: ABIRATERONE
     Route: 065
  14. PREDNISONE [Concomitant]
     Active Substance: PREDNISONE
     Route: 065

REACTIONS (4)
  - Tremor [Unknown]
  - Nausea [Unknown]
  - Fatigue [Unknown]
  - Asthenia [Unknown]

NARRATIVE: CASE EVENT DATE: 20250101
